FAERS Safety Report 10020057 (Version 1)
Quarter: 2014Q1

REPORT INFORMATION
  Report Type: Report from Study
  Country: BR (occurrence: BR)
  Receive Date: 20140318
  Receipt Date: 20140318
  Transmission Date: 20141002
  Serious: Yes (Death, Hospitalization)
  Sender: FDA-Public Use
  Company Number: PHHY2014BR032413

PATIENT
  Sex: Female
  Weight: 40 kg

DRUGS (5)
  1. EXELON PATCH [Suspect]
     Indication: DEMENTIA ALZHEIMER^S TYPE
     Dosage: 4.6 MG (9 MG/ 5CM2), DAILY
     Route: 062
     Dates: end: 20131023
  2. ATENOLOL [Concomitant]
     Indication: BLOOD PRESSURE ABNORMAL
     Dosage: 2 DF (TABLETS), DAILY
  3. SOMALGIN [Concomitant]
     Indication: BLOOD PRESSURE ABNORMAL
     Dosage: 1 DF, DAILY
  4. LOSARTAN [Concomitant]
     Indication: BLOOD PRESSURE ABNORMAL
     Dosage: 1 DF (50 MG0 DAILY
  5. GINKGO BILOBA [Concomitant]
     Indication: HEADACHE
     Dosage: 1 DF, DAILY

REACTIONS (3)
  - Depression [Fatal]
  - Pneumonia [Fatal]
  - Fluid retention [Fatal]
